FAERS Safety Report 10453840 (Version 1)
Quarter: 2014Q3

REPORT INFORMATION
  Report Type: Spontaneous
  Country: US (occurrence: US)
  Receive Date: 20140915
  Receipt Date: 20140915
  Transmission Date: 20150326
  Serious: No
  Sender: FDA-Public Use
  Company Number: US-BRISTOL-MYERS SQUIBB COMPANY-21307061

PATIENT
  Age: 56 Year
  Sex: Female

DRUGS (7)
  1. LASIX [Concomitant]
     Active Substance: FUROSEMIDE
  2. POTASSIUM [Concomitant]
     Active Substance: POTASSIUM
  3. ALDACTONE [Concomitant]
     Active Substance: SPIRONOLACTONE
  4. ESTRACE [Concomitant]
     Active Substance: ESTRADIOL
  5. MOTRIN [Concomitant]
     Active Substance: IBUPROFEN
  6. ELIQUIS [Suspect]
     Active Substance: APIXABAN
     Dosage: 1 DF: UNIT NOS?DOSE REDUCED ONCE A DAY
     Dates: start: 20140722
  7. DILTIAZEM HCL [Concomitant]
     Active Substance: DILTIAZEM HYDROCHLORIDE

REACTIONS (1)
  - Epistaxis [Unknown]
